FAERS Safety Report 5478634-5 (Version None)
Quarter: 2007Q4

REPORT INFORMATION
  Report Type: 
  Country: None (occurrence: None)
  Receive Date: 20071005
  Receipt Date: 20070927
  Transmission Date: 20080405
  Serious: Yes (Death)
  Sender: FDA-Public Use
  Company Number: PT-GENENTECH-248732

PATIENT
  Age: 46 Year
  Sex: Male

DRUGS (1)
  1. RITUXAN [Suspect]
     Indication: NON-HODGKIN'S LYMPHOMA

REACTIONS (3)
  - ANGIOGRAM ABNORMAL [None]
  - BLOOD DISORDER [None]
  - COORDINATION ABNORMAL [None]
